FAERS Safety Report 7179734-4 (Version None)
Quarter: 2010Q4

REPORT INFORMATION
  Report Type: 
  Country: None (occurrence: None)
  Receive Date: 20101221
  Receipt Date: 20101208
  Transmission Date: 20110411
  Serious: Yes (Other)
  Sender: FDA-Public Use
  Company Number: BR-GENENTECH-304672

PATIENT
  Sex: Female
  Weight: 63 kg

DRUGS (8)
  1. RITUXIMAB [Suspect]
     Indication: RHEUMATOID ARTHRITIS
     Dosage: 1000 MG, UNK
     Route: 042
     Dates: start: 20100708, end: 20100729
  2. RITUXIMAB [Suspect]
     Indication: SJOGREN'S SYNDROME
  3. ARAVA [Concomitant]
     Indication: PRODUCT USED FOR UNKNOWN INDICATION
     Dosage: 20 MG, UNK
     Dates: start: 20050101
  4. RIVOTRIL [Concomitant]
     Indication: FIBROMYALGIA
     Dosage: 2 MG, UNK
  5. RIVOTRIL [Concomitant]
     Indication: SLEEP DISORDER
  6. SOLU-MEDROL [Concomitant]
     Indication: PREMEDICATION
     Dosage: 150 MG, UNK
     Dates: start: 20100708
  7. CALCIUM [Concomitant]
     Indication: PRODUCT USED FOR UNKNOWN INDICATION
  8. LYRICA [Concomitant]
     Indication: PRODUCT USED FOR UNKNOWN INDICATION

REACTIONS (16)
  - BONE PAIN [None]
  - CONSTIPATION [None]
  - DRUG INEFFECTIVE [None]
  - HYPERSENSITIVITY [None]
  - HYPERTENSION [None]
  - HYPOAESTHESIA [None]
  - INFUSION RELATED REACTION [None]
  - JOINT RANGE OF MOTION DECREASED [None]
  - JOINT SWELLING [None]
  - MENSTRUAL DISORDER [None]
  - NASOPHARYNGITIS [None]
  - PAIN [None]
  - RHEUMATOID ARTHRITIS [None]
  - THYROID CYST [None]
  - THYROID NEOPLASM [None]
  - WEIGHT INCREASED [None]
